FAERS Safety Report 19741336 (Version 1)
Quarter: 2021Q3

REPORT INFORMATION
  Report Type: Spontaneous
  Country: IN (occurrence: IN)
  Receive Date: 20210825
  Receipt Date: 20210825
  Transmission Date: 20211014
  Serious: Yes (Other)
  Sender: FDA-Public Use
  Company Number: IN-CIPLA (EU) LIMITED-2021IN05921

PATIENT

DRUGS (4)
  1. GELUSIL [ALUMINIUM HYDROXIDE GEL;MAGNESIUM TRISILICATE] [Concomitant]
     Active Substance: ALUMINUM HYDROXIDE\MAGNESIUM TRISILICATE
     Indication: ANTACID THERAPY
     Dosage: UNK, FOR YEARS (10 YEARS)
     Route: 065
  2. CETCIP [Suspect]
     Active Substance: CETIRIZINE HYDROCHLORIDE
     Indication: RHINORRHOEA
     Dosage: 1 DOSAGE FORM, QD
     Route: 065
  3. RANITIDINE. [Concomitant]
     Active Substance: RANITIDINE
     Indication: ANTACID THERAPY
     Dosage: 150 MILLIGRAM, QD, FOR YEARS (10 YEARS)
     Route: 065
  4. CETCIP [Suspect]
     Active Substance: CETIRIZINE HYDROCHLORIDE
     Indication: COUGH

REACTIONS (3)
  - Accident [Unknown]
  - Somnolence [Recovered/Resolved]
  - Headache [Recovered/Resolved]

NARRATIVE: CASE EVENT DATE: 20210805
